FAERS Safety Report 8923821 (Version 3)
Quarter: 2013Q2

REPORT INFORMATION
  Report Type: Spontaneous
  Country: US (occurrence: US)
  Receive Date: 20121126
  Receipt Date: 20130510
  Transmission Date: 20140414
  Serious: Yes (Hospitalization)
  Sender: FDA-Public Use
  Company Number: US-B.I. PHARMACEUTICALS,INC./RIDGEFIELD-2012-BI-00904BP

PATIENT
  Sex: Female
  Weight: 66.68 kg

DRUGS (8)
  1. PRADAXA [Suspect]
     Indication: ATRIAL FIBRILLATION
     Dosage: 300 MG
     Dates: start: 201110, end: 20120320
  2. ADVAIR DISKUS [Concomitant]
  3. DILTIAZEM HCL [Concomitant]
     Dosage: 180 MG
  4. IMDUR [Concomitant]
     Dosage: 30 MG
  5. LASIX [Concomitant]
     Dosage: 10 MG
  6. LOPRESSOR [Concomitant]
     Dosage: 100 MG
  7. LOSARTAN [Concomitant]
     Dosage: 25 MG
  8. SPIRONOLACTONE [Concomitant]
     Dosage: 25 MG

REACTIONS (3)
  - Gastrointestinal haemorrhage [Unknown]
  - Ulcer haemorrhage [Unknown]
  - Iron deficiency anaemia [Unknown]
